FAERS Safety Report 8154719-X (Version None)
Quarter: 2012Q1

REPORT INFORMATION
  Report Type: 
  Country: None (occurrence: None)
  Receive Date: 20120221
  Receipt Date: 20120208
  Transmission Date: 20120608
  Serious: Yes (Hospitalization, Other)
  Sender: FDA-Public Use
  Company Number: PHFR2011GB05077

PATIENT
  Sex: Female

DRUGS (5)
  1. DIAZEPAM [Concomitant]
  2. LITHIUM CARBONATE [Concomitant]
     Dosage: 800 MG, DAILY
     Route: 048
  3. MIRTAZAPINE [Concomitant]
     Dosage: 45 MG, DAILY
     Route: 048
  4. CLOZARIL [Suspect]
     Indication: SCHIZOPHRENIA
     Dosage: 350 MG, DAILY
     Route: 048
     Dates: start: 20110822
  5. ARIPIPRAZOLE [Concomitant]

REACTIONS (3)
  - HYPERTENSION [None]
  - BLOOD PRESSURE ORTHOSTATIC INCREASED [None]
  - CHEST PAIN [None]
